FAERS Safety Report 9972870 (Version 2)
Quarter: 2014Q2

REPORT INFORMATION
  Report Type: Spontaneous
  Country: FI (occurrence: FI)
  Receive Date: 20140306
  Receipt Date: 20140616
  Transmission Date: 20141212
  Serious: Yes (Life-Threatening, Hospitalization, Other)
  Sender: FDA-Public Use
  Company Number: FI-TEVA-466240ISR

PATIENT
  Age: 80 Year
  Sex: Female

DRUGS (3)
  1. OXAZEPAM [Suspect]
     Indication: PHYSICAL ASSAULT
     Dosage: APPROXIMATELY 120MG (ESTIMATED)
     Route: 048
     Dates: start: 200903, end: 20090314
  2. DIAZEPAM [Suspect]
     Indication: PHYSICAL ASSAULT
     Dosage: APPROXIMATELY 25MG (ESTIMATED)
     Route: 048
     Dates: start: 200903, end: 20090314
  3. CHLORDIAZEPOXIDE [Suspect]
     Dosage: APPROXIMATELY 25MG (ESTIMATED)
     Route: 048
     Dates: start: 200903, end: 20090314

REACTIONS (3)
  - Poisoning deliberate [Recovered/Resolved]
  - Loss of consciousness [Recovered/Resolved]
  - Disorientation [Recovered/Resolved]
